FAERS Safety Report 7167296-7 (Version None)
Quarter: 2010Q4

REPORT INFORMATION
  Report Type: 
  Country: None (occurrence: None)
  Receive Date: 20101216
  Receipt Date: 20101208
  Transmission Date: 20110411
  Serious: Yes (Hospitalization, Other)
  Sender: FDA-Public Use
  Company Number: US-ROCHE-727185

PATIENT
  Sex: Female
  Weight: 102.1 kg

DRUGS (2)
  1. ACCUTANE [Suspect]
     Route: 065
     Dates: start: 19890101, end: 19900101
  2. ACCUTANE [Suspect]
     Route: 065
     Dates: start: 19930101

REACTIONS (18)
  - ANAL ABSCESS [None]
  - ANAL FISTULA [None]
  - CARPAL TUNNEL SYNDROME [None]
  - CROHN'S DISEASE [None]
  - CUBITAL TUNNEL SYNDROME [None]
  - DEPRESSION [None]
  - DIVERTICULITIS [None]
  - GASTROINTESTINAL INJURY [None]
  - HAEMORRHOIDS [None]
  - INFLAMMATORY BOWEL DISEASE [None]
  - IRRITABLE BOWEL SYNDROME [None]
  - OSTEOARTHRITIS [None]
  - PEPTIC ULCER [None]
  - RECTAL ABSCESS [None]
  - RECTAL FISSURE [None]
  - RECTAL PROLAPSE [None]
  - SEPTIC ARTHRITIS STAPHYLOCOCCAL [None]
  - SPINAL OSTEOARTHRITIS [None]
